FAERS Safety Report 8476610-1 (Version None)
Quarter: 2012Q2

REPORT INFORMATION
  Report Type: 
  Country: None (occurrence: None)
  Receive Date: 20120628
  Receipt Date: 20120621
  Transmission Date: 20120825
  Serious: Yes (Other)
  Sender: FDA-Public Use
  Company Number: US-JNJFOC-20120607011

PATIENT
  Age: 74 Year
  Sex: Female

DRUGS (3)
  1. REMICADE [Suspect]
     Indication: PRODUCT USED FOR UNKNOWN INDICATION
     Dosage: 2 MG/KG
     Route: 042
     Dates: start: 20091006
  2. REMICADE [Suspect]
     Route: 042
     Dates: start: 20100112, end: 20100112
  3. METHOTREXATE [Concomitant]

REACTIONS (1)
  - SKIN CANCER [None]
